FAERS Safety Report 16676801 (Version 1)
Quarter: 2019Q3

REPORT INFORMATION
  Report Type: Spontaneous
  Country: US (occurrence: US)
  Receive Date: 20190807
  Receipt Date: 20190807
  Transmission Date: 20191004
  Serious: No
  Sender: FDA-Public Use
  Company Number: US-BRISTOL-MYERS SQUIBB COMPANY-BMS-2019-077514

PATIENT
  Sex: Female
  Weight: 74.8 kg

DRUGS (1)
  1. COUMADIN [Suspect]
     Active Substance: WARFARIN SODIUM
     Indication: ATRIAL FIBRILLATION
     Dosage: 10 MG (3 TIMES A WEEK), 7.5 MG (4 TIMES A WEEK)
     Route: 048
     Dates: start: 2017

REACTIONS (1)
  - Adverse event [Unknown]
